FAERS Safety Report 6195998-8 (Version None)
Quarter: 2009Q2

REPORT INFORMATION
  Report Type: 
  Country: None (occurrence: None)
  Receive Date: 20090520
  Receipt Date: 20031029
  Transmission Date: 20091009
  Serious: Yes (Death, Hospitalization)
  Sender: FDA-Public Use
  Company Number: NL-ROCHE-597585

PATIENT
  Sex: Male

DRUGS (15)
  1. CAPECITABINE [Suspect]
     Indication: COLORECTAL CANCER
     Dosage: GIVEN ON DAY 1-14 PER THREE WEEKS(AS PER PROTOCOL), THERAPY TEMPORARILY INTERRUPTED
     Route: 048
     Dates: start: 20030714, end: 20030718
  2. CAPECITABINE [Suspect]
     Dosage: GIVEN ON DAY 1-14 PER THREE WEEKS(AS PER PROTOCOL)
     Route: 048
     Dates: start: 20030908, end: 20030919
  3. IRINOTECAN HCL [Suspect]
     Indication: COLORECTAL CANCER
     Dosage: THERAPY TEMPORARILY INTERRUPTED
     Route: 042
     Dates: start: 20030714, end: 20030718
  4. IRINOTECAN HCL [Suspect]
     Route: 042
     Dates: start: 20030908, end: 20030919
  5. TRAMADOL HCL [Concomitant]
     Dosage: DOSE : 2 DD 50 MG
     Route: 048
  6. TEMAZEPAM [Concomitant]
     Dosage: 10 MG 1 DD
     Route: 048
  7. METOCLOPRAMIDE [Concomitant]
     Dosage: DOSE: 80 MG 3DD
  8. DICLOFENAC [Concomitant]
     Dosage: DRUG NAME REPROTED AS DICLOFENAC WAFERIN 3 DD 50 UG, 3X D 100 MG
     Route: 048
  9. DICLOFENAC [Concomitant]
     Dosage: DOSE : 3 X 75 MG ( 7 TAB)
     Route: 048
  10. PANTOCAL [Concomitant]
  11. COTRIM [Concomitant]
     Dosage: CO - TRIMOXAZAOL 960 MG 2 X DD
  12. TRAMOL [Concomitant]
     Dosage: DOSE: 3 DD 100 MG
     Route: 048
  13. KYTRIL [Concomitant]
     Route: 042
  14. FUROSEMIDE [Concomitant]
     Dosage: DOSE : 2 X  40 MG
     Route: 042
  15. BUSCOPAN [Concomitant]

REACTIONS (9)
  - ASCITES [None]
  - COLORECTAL CANCER [None]
  - DEHYDRATION [None]
  - DISEASE PROGRESSION [None]
  - METASTASES TO LIVER [None]
  - METASTASES TO PERITONEUM [None]
  - METASTASIS [None]
  - NAUSEA [None]
  - VOMITING [None]
